FAERS Safety Report 9435656 (Version 1)
Quarter: 2013Q3

REPORT INFORMATION
  Report Type: Spontaneous
  Country: US (occurrence: US)
  Receive Date: 20130801
  Receipt Date: 20130801
  Transmission Date: 20140515
  Serious: Yes (Other)
  Sender: FDA-Public Use
  Company Number: US-ROCHE-1249521

PATIENT
  Age: 44 Year
  Sex: Female
  Weight: 84.44 kg

DRUGS (2)
  1. PEGASYS [Suspect]
     Indication: CHRONIC HEPATITIS C
     Route: 058
     Dates: start: 20130321
  2. RIBASPHERE [Suspect]
     Indication: CHRONIC HEPATITIS C
     Dosage: DAILY
     Route: 048
     Dates: start: 20130321

REACTIONS (5)
  - Blood pressure increased [Recovering/Resolving]
  - Blood triglycerides increased [Recovered/Resolved]
  - Fatigue [Unknown]
  - Insomnia [Unknown]
  - White blood cell count decreased [Unknown]
